FAERS Safety Report 19530297 (Version 1)
Quarter: 2021Q3

REPORT INFORMATION
  Report Type: Spontaneous
  Country: ES (occurrence: ES)
  Receive Date: 20210713
  Receipt Date: 20210713
  Transmission Date: 20211014
  Serious: Yes (Other)
  Sender: FDA-Public Use
  Company Number: ES-SUN PHARMACEUTICAL INDUSTRIES LTD-2021R1-301894

PATIENT
  Age: 16 Year
  Sex: Male

DRUGS (1)
  1. FLECAINIDE [Suspect]
     Active Substance: FLECAINIDE
     Indication: PRODUCT USED FOR UNKNOWN INDICATION
     Dosage: 100 MILLIGRAM , UNK (50 PILLS)
     Route: 065

REACTIONS (4)
  - Toxicity to various agents [Unknown]
  - Electrocardiogram QRS complex abnormal [Recovering/Resolving]
  - Brugada syndrome [Recovered/Resolved]
  - Overdose [Unknown]
